FAERS Safety Report 25680712 (Version 1)
Quarter: 2025Q3

REPORT INFORMATION
  Report Type: Report from Study
  Country: EU (occurrence: EU)
  Receive Date: 20250814
  Receipt Date: 20250814
  Transmission Date: 20251021
  Serious: Yes (Death, Other)
  Sender: SANOFI AVENTIS
  Company Number: EU-DialogSolutions-SAAVPROD-PI810325-C1

PATIENT
  Age: 70 Year

DRUGS (13)
  1. ISATUXIMAB [Suspect]
     Active Substance: ISATUXIMAB
     Indication: Plasma cell myeloma
  2. ISATUXIMAB [Suspect]
     Active Substance: ISATUXIMAB
  3. ISATUXIMAB [Suspect]
     Active Substance: ISATUXIMAB
     Dosage: 10 MG/KG, QOW (ON DAY 1,15) (LIGHT CONSOLIDATION CYCLES )
     Route: 042
  4. DEXAMETHASONE [Suspect]
     Active Substance: DEXAMETHASONE
     Indication: Plasma cell myeloma
  5. DEXAMETHASONE [Suspect]
     Active Substance: DEXAMETHASONE
  6. DEXAMETHASONE [Suspect]
     Active Substance: DEXAMETHASONE
     Dosage: 20 MG, QOW (DD 1, 15) (LIGHT CONSOLIDATION CYCLES )
     Route: 048
  7. CARFILZOMIB [Suspect]
     Active Substance: CARFILZOMIB
     Indication: Plasma cell myeloma
  8. CARFILZOMIB [Suspect]
     Active Substance: CARFILZOMIB
  9. CARFILZOMIB [Suspect]
     Active Substance: CARFILZOMIB
     Dosage: 56 MG/M2, Q4W (DD1)
     Route: 042
  10. LENALIDOMIDE [Suspect]
     Active Substance: LENALIDOMIDE
     Indication: Plasma cell myeloma
  11. LENALIDOMIDE [Suspect]
     Active Substance: LENALIDOMIDE
  12. LENALIDOMIDE [Suspect]
     Active Substance: LENALIDOMIDE
     Dosage: 10 MG, QD  QD (ON DAYS 1?21) (LIGHT CONSOLIDATION CYCLES )
     Route: 048
  13. MELPHALAN [Suspect]
     Active Substance: MELPHALAN
     Indication: Plasma cell myeloma

REACTIONS (1)
  - Cerebral ischaemia [Fatal]
